FAERS Safety Report 5308630-X (Version None)
Quarter: 2007Q2

REPORT INFORMATION
  Report Type: 
  Country: None (occurrence: None)
  Receive Date: 20070426
  Receipt Date: 20070416
  Transmission Date: 20071010
  Serious: Yes (Death, Other)
  Sender: FDA-Public Use
  Company Number: DE-AVENTIS-200711005DE

PATIENT
  Sex: Male
  Weight: 82 kg

DRUGS (3)
  1. DOCETAXEL [Suspect]
     Indication: METASTATIC GASTRIC CANCER
     Route: 042
     Dates: start: 20070403, end: 20070403
  2. CISPLATIN [Suspect]
     Indication: METASTATIC GASTRIC CANCER
     Route: 042
     Dates: start: 20070403, end: 20070403
  3. CETUXIMAB [Concomitant]
     Indication: METASTATIC GASTRIC CANCER
     Route: 042
     Dates: start: 20070403, end: 20070403

REACTIONS (5)
  - ANAEMIA [None]
  - DIARRHOEA [None]
  - LEUKOPENIA [None]
  - NEUTROPENIA [None]
  - SHOCK [None]
